FAERS Safety Report 14038534 (Version 1)
Quarter: 2017Q4

REPORT INFORMATION
  Report Type: Spontaneous
  Country: GR (occurrence: GR)
  Receive Date: 20171004
  Receipt Date: 20171004
  Transmission Date: 20180321
  Serious: Yes (Hospitalization, Other)
  Sender: FDA-Public Use
  Company Number: GR-JNJFOC-20160123352

PATIENT
  Age: 78 Year
  Sex: Female

DRUGS (12)
  1. XARELTO [Suspect]
     Active Substance: RIVAROXABAN
     Indication: ATRIAL FIBRILLATION
     Route: 048
     Dates: start: 2015, end: 20170601
  2. CONTROLOC [Concomitant]
     Active Substance: PANTOPRAZOLE SODIUM
     Indication: PROPHYLAXIS
     Route: 065
  3. INNOHEP [Concomitant]
     Active Substance: TINZAPARIN SODIUM
     Route: 065
     Dates: start: 201706, end: 201707
  4. LOPRESSOR [Concomitant]
     Active Substance: METOPROLOL TARTRATE
     Dates: start: 20170225
  5. XARELTO [Suspect]
     Active Substance: RIVAROXABAN
     Indication: CEREBROVASCULAR ACCIDENT PROPHYLAXIS
     Route: 048
     Dates: start: 201501, end: 2015
  6. RYTMONORM [Concomitant]
     Active Substance: PROPAFENONE
     Route: 065
     Dates: start: 20170224
  7. XARELTO [Suspect]
     Active Substance: RIVAROXABAN
     Indication: ATRIAL FIBRILLATION
     Route: 048
     Dates: start: 201501, end: 2015
  8. GLOPIR [Concomitant]
     Indication: BLOOD PRESSURE MANAGEMENT
     Route: 065
  9. COAPROVEL [Concomitant]
     Active Substance: HYDROCHLOROTHIAZIDE\IRBESARTAN
     Indication: BLOOD PRESSURE MANAGEMENT
     Route: 065
     Dates: start: 201704
  10. LIPITOR [Concomitant]
     Active Substance: ATORVASTATIN CALCIUM
     Indication: BLOOD CHOLESTEROL INCREASED
     Route: 065
  11. PROPAFENONE HYDROCHLORIDE. [Concomitant]
     Active Substance: PROPAFENONE HYDROCHLORIDE
     Route: 065
     Dates: end: 20170224
  12. XARELTO [Suspect]
     Active Substance: RIVAROXABAN
     Indication: CEREBROVASCULAR ACCIDENT PROPHYLAXIS
     Route: 048
     Dates: start: 2015, end: 20170601

REACTIONS (6)
  - Serum ferritin decreased [Recovered/Resolved]
  - Upper gastrointestinal haemorrhage [Recovered/Resolved]
  - Polypectomy [Recovered/Resolved]
  - Large intestine polyp [Recovered/Resolved]
  - Serum ferritin decreased [Recovered/Resolved]
  - Occult blood positive [Recovered/Resolved]

NARRATIVE: CASE EVENT DATE: 201503
